FAERS Safety Report 4364148-2 (Version None)
Quarter: 2004Q2

REPORT INFORMATION
  Report Type: 
  Country: None (occurrence: None)
  Receive Date: 20040519
  Receipt Date: 20040505
  Transmission Date: 20050107
  Serious: Yes (Other)
  Sender: FDA-Public Use
  Company Number: S04-USA-02752-01

PATIENT
  Age: 87 Year
  Sex: Male

DRUGS (8)
  1. NAMENDA [Suspect]
     Indication: DEMENTIA ALZHEIMER'S TYPE
  2. ASPIRIN [Concomitant]
  3. ARICEPT [Concomitant]
  4. SYNTHROID [Concomitant]
  5. NORMODYNE [Concomitant]
  6. VITAMIN E [Concomitant]
  7. VITAMIN C [Concomitant]
  8. RITUXAN [Concomitant]

REACTIONS (3)
  - NEUTROPENIA [None]
  - NEUTROPHIL COUNT DECREASED [None]
  - WHITE BLOOD CELL COUNT DECREASED [None]
